FAERS Safety Report 5460325-8 (Version None)
Quarter: 2007Q3

REPORT INFORMATION
  Report Type: 
  Country: None (occurrence: None)
  Receive Date: 20070919
  Receipt Date: 20070628
  Transmission Date: 20080115
  Serious: Yes (Hospitalization)
  Sender: FDA-Public Use
  Company Number: US-ASTRAZENECA-2007UW15571

PATIENT
  Age: 30 Year
  Sex: Female

DRUGS (4)
  1. SEROQUEL [Suspect]
     Route: 048
  2. ARIPIPRAZOLE [Concomitant]
  3. HALDOL [Concomitant]
  4. ANTICHOLINERGIC [Concomitant]

REACTIONS (1)
  - SUICIDE ATTEMPT [None]
